FAERS Safety Report 4725033-7 (Version None)
Quarter: 2005Q3

REPORT INFORMATION
  Report Type: 
  Country: None (occurrence: None)
  Receive Date: 20050722
  Receipt Date: 20050712
  Transmission Date: 20060218
  Serious: Yes (Death)
  Sender: FDA-Public Use
  Company Number: 2005103174

PATIENT
  Age: 31 Year
  Sex: Female

DRUGS (1)
  1. NEURONTIN [Suspect]
     Indication: BACK PAIN

REACTIONS (5)
  - COMPLETED SUICIDE [None]
  - DRUG INEFFECTIVE [None]
  - GUN SHOT WOUND [None]
  - INADEQUATE ANALGESIA [None]
  - INTENTIONAL SELF-INJURY [None]
